APPROVED DRUG PRODUCT: CYTOXAN
Active Ingredient: CYCLOPHOSPHAMIDE
Strength: 50MG **Federal Register determination that product was not discontinued or withdrawn for safety or effectiveness reasons**
Dosage Form/Route: TABLET;ORAL
Application: N012141 | Product #001
Applicant: BAXTER HEALTHCARE CORP
Approved: Approved Prior to Jan 1, 1982 | RLD: Yes | RS: Yes | Type: RX